FAERS Safety Report 5699727-3 (Version None)
Quarter: 2008Q2

REPORT INFORMATION
  Report Type: 
  Country: None (occurrence: None)
  Receive Date: 20080410
  Receipt Date: 20080404
  Transmission Date: 20081010
  Serious: Yes (Other)
  Sender: FDA-Public Use
  Company Number: PHNU2008DE01101

PATIENT
  Age: 73 Year
  Sex: Female
  Weight: 70 kg

DRUGS (7)
  1. RASILEZ [Suspect]
     Dosage: 300 MG, QD
     Dates: start: 20071105
  2. CLONIDINE HCL [Concomitant]
     Dosage: 150 MG, BID
  3. BISOPROLOL FUMARATE [Concomitant]
     Dosage: 10 MG, QD
  4. MOXONIDINE [Concomitant]
     Dosage: 1 DF, BID
  5. IRBESARTAN [Concomitant]
     Dosage: 1 DF, QD
  6. HYDROCHLOROTHIAZIDE [Concomitant]
     Dosage: 0.5 DF, QD
  7. SPIRO [Concomitant]
     Dosage: 1 DF, QD

REACTIONS (6)
  - FACE OEDEMA [None]
  - LIP SWELLING [None]
  - OEDEMA PERIPHERAL [None]
  - PERIORBITAL OEDEMA [None]
  - PRURITUS [None]
  - RASH [None]
